FAERS Safety Report 9978966 (Version 1)
Quarter: 2014Q1

REPORT INFORMATION
  Report Type: Report from Study
  Country: US (occurrence: US)
  Receive Date: 20140306
  Receipt Date: 20140306
  Transmission Date: 20141002
  Serious: No
  Sender: FDA-Public Use
  Company Number: US-ABBVIE-13P-163-1169186-00

PATIENT
  Age: 40 Year
  Sex: Female

DRUGS (5)
  1. HUMIRA [Suspect]
     Indication: RHEUMATOID ARTHRITIS
     Dates: start: 2005
  2. HUMIRA [Suspect]
     Indication: PSORIATIC ARTHROPATHY
  3. VITAMIN D [Concomitant]
     Indication: PRODUCT USED FOR UNKNOWN INDICATION
  4. LOSEASONIQUE [Concomitant]
     Indication: CONTRACEPTION
  5. ADVIL [Concomitant]
     Indication: PAIN

REACTIONS (1)
  - Breast disorder female [Not Recovered/Not Resolved]
